FAERS Safety Report 24413495 (Version 1)
Quarter: 2024Q4

REPORT INFORMATION
  Report Type: Report from Study
  Country: US (occurrence: US)
  Receive Date: 20241008
  Receipt Date: 20241008
  Transmission Date: 20250114
  Serious: Yes (Life-Threatening, Other)
  Sender: MYLAN
  Company Number: US-MYLANLABS-2024M1091443

PATIENT
  Age: 86 Year
  Sex: Female

DRUGS (1)
  1. CELEBREX [Suspect]
     Active Substance: CELECOXIB
     Indication: Product used for unknown indication
     Dosage: UNK
     Route: 065

REACTIONS (2)
  - Kidney infection [Unknown]
  - Pharyngitis streptococcal [Unknown]
